FAERS Safety Report 4523922-X (Version None)
Quarter: 2004Q4

REPORT INFORMATION
  Report Type: 
  Country: None (occurrence: None)
  Receive Date: 20041209
  Receipt Date: 20041130
  Transmission Date: 20050328
  Serious: Yes (Hospitalization)
  Sender: FDA-Public Use
  Company Number: US-2004-027671

PATIENT
  Age: 44 Year
  Sex: Female
  Weight: 56.2 kg

DRUGS (1)
  1. BETASERON [Suspect]
     Indication: RELAPSING-REMITTING MULTIPLE SCLEROSIS
     Dosage: 8 MIU, EVERY 2D, SUBCUTANEOUS
     Route: 058
     Dates: start: 20040401, end: 20040617

REACTIONS (3)
  - BONE OPERATION [None]
  - CALCINOSIS [None]
  - TRANSPLANT [None]
